FAERS Safety Report 8980098 (Version 1)
Quarter: 2012Q4

REPORT INFORMATION
  Report Type: 
  Country: TR (occurrence: TR)
  Receive Date: 20121221
  Receipt Date: 20121221
  Transmission Date: 20130627
  Serious: Yes (Other)
  Sender: FDA-Public Use
  Company Number: PHHY2012TR117670

PATIENT
  Age: 53 Year
  Sex: Male

DRUGS (3)
  1. ALLOPURINOL [Suspect]
     Indication: BLOOD URIC ACID INCREASED
     Dosage: 150 mg, daily
     Route: 048
     Dates: start: 20121015
  2. ALLOPURINOL [Suspect]
     Dosage: 300 mg, daily
     Route: 048
     Dates: end: 20121201
  3. XATRAL [Concomitant]
     Dosage: UNK UKN, UNK

REACTIONS (1)
  - Prostatic specific antigen increased [Recovering/Resolving]
